FAERS Safety Report 7142075-5 (Version None)
Quarter: 2010Q4

REPORT INFORMATION
  Report Type: 
  Country: None (occurrence: None)
  Receive Date: 20101207
  Receipt Date: 20101201
  Transmission Date: 20110411
  Serious: Yes (Other)
  Sender: FDA-Public Use
  Company Number: B0687798A

PATIENT
  Age: 50 Year
  Sex: Female

DRUGS (1)
  1. ZOFRAN [Suspect]
     Route: 065
     Dates: start: 20101125

REACTIONS (1)
  - DYSPNOEA [None]
